FAERS Safety Report 5123121-7 (Version None)
Quarter: 2006Q4

REPORT INFORMATION
  Report Type: 
  Country: None (occurrence: None)
  Receive Date: 20061009
  Receipt Date: 20061003
  Transmission Date: 20070319
  Serious: Yes (Hospitalization, Other)
  Sender: FDA-Public Use
  Company Number: 2006UW19229

PATIENT
  Sex: Female

DRUGS (5)
  1. SEROQUEL [Suspect]
     Indication: SCHIZOPHRENIA
     Route: 048
     Dates: start: 20030101
  2. SEROQUEL [Suspect]
     Route: 048
  3. SEROQUEL [Suspect]
     Route: 048
  4. DIANE - 35 [Concomitant]
     Indication: HAIR GROWTH ABNORMAL
     Route: 048
  5. CLOZAPINE [Concomitant]
     Indication: SCHIZOPHRENIA

REACTIONS (4)
  - ANXIETY [None]
  - HALLUCINATION, AUDITORY [None]
  - NERVOUSNESS [None]
  - NON-HODGKIN'S LYMPHOMA [None]
